FAERS Safety Report 13762514 (Version 1)
Quarter: 2017Q3

REPORT INFORMATION
  Report Type: Spontaneous
  Country: US (occurrence: US)
  Receive Date: 20170718
  Receipt Date: 20170718
  Transmission Date: 20171127
  Serious: Yes (Hospitalization)
  Sender: FDA-Public Use
  Company Number: None

PATIENT
  Age: 65 Year
  Sex: Male
  Weight: 99.7 kg

DRUGS (3)
  1. DAUNORUBICIN [Suspect]
     Active Substance: DAUNORUBICIN
     Dates: end: 20170707
  2. NORMAL SALINE [Concomitant]
     Active Substance: SODIUM CHLORIDE
  3. CYTARABINE. [Suspect]
     Active Substance: CYTARABINE
     Dates: end: 20170707

REACTIONS (4)
  - Dyspnoea [None]
  - Hypoxia [None]
  - Sputum discoloured [None]
  - Pyrexia [None]

NARRATIVE: CASE EVENT DATE: 20170708
